FAERS Safety Report 19175770 (Version 1)
Quarter: 2021Q2

REPORT INFORMATION
  Report Type: Spontaneous
  Country: CN (occurrence: CN)
  Receive Date: 20210423
  Receipt Date: 20210423
  Transmission Date: 20210717
  Serious: Yes (Other)
  Sender: FDA-Public Use
  Company Number: CN-BAYER-2021-129768

PATIENT
  Age: 81 Year
  Sex: Female
  Weight: 49 kg

DRUGS (2)
  1. STIVARGA [Suspect]
     Active Substance: REGORAFENIB
     Indication: HEPATIC CANCER
     Dosage: 40 MG, BID
     Route: 048
     Dates: start: 20210310, end: 20210324
  2. CAMRELIZUMAB [Suspect]
     Active Substance: CAMRELIZUMAB
     Indication: HEPATIC CANCER
     Dosage: 200 MG, QD
     Route: 041
     Dates: start: 20210309, end: 20210309

REACTIONS (4)
  - White blood cell count decreased [Recovering/Resolving]
  - Myelosuppression [Recovering/Resolving]
  - Off label use [None]
  - Neutrophil count decreased [Recovering/Resolving]

NARRATIVE: CASE EVENT DATE: 20210310
